FAERS Safety Report 5913841-6 (Version None)
Quarter: 2008Q4

REPORT INFORMATION
  Report Type: 
  Country: None (occurrence: None)
  Receive Date: 20081009
  Receipt Date: 20080930
  Transmission Date: 20090506
  Serious: Yes (Hospitalization)
  Sender: FDA-Public Use
  Company Number: A0749863A

PATIENT
  Age: 69 Year
  Sex: Female

DRUGS (8)
  1. COREG CR [Suspect]
     Dosage: 10MG PER DAY
     Route: 048
     Dates: start: 20080226
  2. TRIAMCINOLONE [Concomitant]
  3. SYNTHROID [Concomitant]
  4. ZYRTEC [Concomitant]
  5. PROVENTIL [Concomitant]
  6. ATROVENT [Concomitant]
  7. FLOVENT [Concomitant]
  8. SPIRIVA [Concomitant]

REACTIONS (7)
  - BEDRIDDEN [None]
  - BONE PAIN [None]
  - DYSPNOEA [None]
  - FATIGUE [None]
  - LUNG DISORDER [None]
  - MIDDLE INSOMNIA [None]
  - PAIN IN EXTREMITY [None]
